FAERS Safety Report 7379289-5 (Version None)
Quarter: 2011Q1

REPORT INFORMATION
  Report Type: 
  Country: None (occurrence: None)
  Receive Date: 20110329
  Receipt Date: 20110228
  Transmission Date: 20110831
  Serious: Yes (Hospitalization)
  Sender: FDA-Public Use
  Company Number: PL-AMGEN-POLSP2011002294

PATIENT
  Age: 55 Year
  Sex: Male
  Weight: 81.5 kg

DRUGS (8)
  1. ACIDUM FOLICUM [Concomitant]
     Dosage: UNK
     Route: 048
     Dates: start: 20101227
  2. ENBREL [Suspect]
     Indication: PSORIASIS
  3. METHOTREXATE [Concomitant]
     Dosage: 15 MG, WEEKLY
     Route: 048
     Dates: start: 20101226, end: 20110102
  4. ENBREL [Suspect]
     Indication: PSORIATIC ARTHROPATHY
     Dosage: 50 MG, QWK
     Route: 058
     Dates: start: 20101209, end: 20101231
  5. REMICADE [Concomitant]
  6. HUMIRA [Concomitant]
  7. KETONAL                            /00321701/ [Concomitant]
     Dosage: EXTEMPORANEOUSLY
     Route: 048
  8. DICLOFENAC [Concomitant]
     Indication: PAIN
     Dosage: 1-2 /DAYS

REACTIONS (5)
  - MUSCULOSKELETAL PAIN [None]
  - DERMATITIS EXFOLIATIVE [None]
  - PSORIASIS [None]
  - CHILLS [None]
  - BODY TEMPERATURE INCREASED [None]
